FAERS Safety Report 9966356 (Version 2)
Quarter: 2014Q1

REPORT INFORMATION
  Report Type: Report from Study
  Country: US (occurrence: US)
  Receive Date: 20140305
  Receipt Date: 20140305
  Transmission Date: 20141002
  Serious: No
  Sender: FDA-Public Use
  Company Number: US-ABBVIE-13P-163-1090651-00

PATIENT
  Age: 37 Year
  Sex: Male
  Weight: 81.72 kg

DRUGS (4)
  1. HUMIRA [Suspect]
     Indication: PSORIASIS
     Dosage: PSORIASIS STARTER PACK
     Dates: start: 20130415
  2. HUMIRA [Suspect]
     Indication: PSORIATIC ARTHROPATHY
     Route: 058
     Dates: start: 201304
  3. UNKNOWN TOPICALS [Concomitant]
     Indication: PSORIASIS
     Route: 061
     Dates: start: 201304
  4. UNKNOWN TOPICALS [Concomitant]
     Dates: start: 20130531

REACTIONS (4)
  - Fatigue [Not Recovered/Not Resolved]
  - Headache [Not Recovered/Not Resolved]
  - Psoriasis [Recovering/Resolving]
  - Headache [Recovering/Resolving]
